FAERS Safety Report 5909006-4 (Version None)
Quarter: 2008Q4

REPORT INFORMATION
  Report Type: 
  Country: None (occurrence: None)
  Receive Date: 20081006
  Receipt Date: 20080923
  Transmission Date: 20090506
  Serious: Yes (Hospitalization)
  Sender: FDA-Public Use
  Company Number: FR-ROCHE-582463

PATIENT
  Sex: Female
  Weight: 83 kg

DRUGS (5)
  1. SAQUINAVIR [Suspect]
     Indication: HIV INFECTION
     Dosage: DRUG REPORTED AS INVIRASE
     Route: 048
     Dates: start: 20080306
  2. NORVIR [Concomitant]
     Indication: HIV INFECTION
     Dosage: FREQUENCY REPORTED AS QD
     Route: 048
     Dates: start: 20080306
  3. KIVEXA [Concomitant]
     Indication: HIV INFECTION
     Dosage: FREQUENCY REPORTED AS QD
     Route: 048
     Dates: start: 20080306
  4. TRIZIVIR [Concomitant]
     Indication: HIV INFECTION
     Dosage: FREQUENCY REPORTED AS QD
     Route: 048
     Dates: start: 20040401, end: 20080306
  5. TARDYFERON [Concomitant]
     Indication: ANAEMIA PROPHYLAXIS
     Dosage: FREQUENCY REPORTED AS QD
     Route: 048
     Dates: start: 20080515

REACTIONS (3)
  - HAEMATURIA [None]
  - HEADACHE [None]
  - RENAL COLIC [None]
